FAERS Safety Report 15076922 (Version 1)
Quarter: 2018Q2

REPORT INFORMATION
  Report Type: Spontaneous
  Country: US (occurrence: US)
  Receive Date: 20180627
  Receipt Date: 20180627
  Transmission Date: 20180711
  Serious: Yes (Other)
  Sender: FDA-Public Use
  Company Number: US-NOVOPROD-606589

PATIENT
  Age: 66 Year
  Sex: Male

DRUGS (2)
  1. VICTOZA [Suspect]
     Active Substance: LIRAGLUTIDE
     Indication: TYPE 2 DIABETES MELLITUS
     Dosage: UNK
     Route: 058
     Dates: start: 2013, end: 2017
  2. VICTOZA [Suspect]
     Active Substance: LIRAGLUTIDE
     Dosage: INTENTIONAL HALF DOSE (NINE CLICKS)
     Route: 058
     Dates: start: 201801

REACTIONS (3)
  - Scrotal abscess [Recovered/Resolved]
  - Injection site bruising [Recovered/Resolved]
  - Intentional underdose [Not Recovered/Not Resolved]

NARRATIVE: CASE EVENT DATE: 2013
